FAERS Safety Report 6260933-0 (Version None)
Quarter: 2009Q3

REPORT INFORMATION
  Report Type: 
  Country: None (occurrence: None)
  Receive Date: 20090707
  Receipt Date: 20090707
  Transmission Date: 20100115
  Serious: Yes (Hospitalization)
  Sender: FDA-Public Use
  Company Number: None

PATIENT
  Age: 77 Year
  Sex: Female
  Weight: 86.1834 kg

DRUGS (1)
  1. METHOTREXATE [Suspect]
     Indication: TEMPORAL ARTERITIS
     Dosage: 20 MG DAILY PO (047)
     Route: 048
     Dates: start: 20090623, end: 20090630

REACTIONS (3)
  - INAPPROPRIATE SCHEDULE OF DRUG ADMINISTRATION [None]
  - OROPHARYNGEAL PAIN [None]
  - RASH [None]
